FAERS Safety Report 16825184 (Version 1)
Quarter: 2019Q3

REPORT INFORMATION
  Report Type: Spontaneous
  Country: FR (occurrence: FR)
  Receive Date: 20190919
  Receipt Date: 20190919
  Transmission Date: 20191005
  Serious: Yes (Hospitalization)
  Sender: FDA-Public Use
  Company Number: FR-SUN PHARMACEUTICAL INDUSTRIES LTD-2019RR-221083

PATIENT
  Age: 21 Year
  Sex: Female

DRUGS (6)
  1. HAVLANE [Suspect]
     Active Substance: LOPRAZOLAM
     Indication: PRODUCT USED FOR UNKNOWN INDICATION
     Dosage: 0.5 BOITE DE CONTENANCE INCONNUE ()
     Route: 048
     Dates: start: 20181226, end: 20181226
  2. FERVEX (ACETAMINOPHEN\ASCORBIC ACID\PHENIRAMINE MALEATE) [Suspect]
     Active Substance: ACETAMINOPHEN\ASCORBIC ACID\PHENIRAMINE MALEATE
     Indication: PRODUCT USED FOR UNKNOWN INDICATION
     Dosage: 1 DOSAGE FORM, UNK
     Route: 048
     Dates: start: 20181226, end: 20181226
  3. ACETAMINOPHEN\CHLORPHENIRAMINE\PSEUDOEPHEDRINE [Suspect]
     Active Substance: ACETAMINOPHEN\CHLORPHENIRAMINE\PSEUDOEPHEDRINE
  4. PARACETAMOL [Suspect]
     Active Substance: ACETAMINOPHEN
     Indication: PRODUCT USED FOR UNKNOWN INDICATION
     Dosage: 2 A 3 CPS ()
     Route: 048
     Dates: start: 20181226, end: 20181226
  5. CODEINE [Suspect]
     Active Substance: CODEINE
     Indication: PRODUCT USED FOR UNKNOWN INDICATION
     Dosage: 2 A 3 CPS ()
     Route: 048
     Dates: start: 20181226
  6. ACETAMINOPHEN\CHLORPHENIRAMINE\PHENYLPROPANOLAMINE. [Suspect]
     Active Substance: ACETAMINOPHEN\CHLORPHENIRAMINE\PHENYLPROPANOLAMINE

REACTIONS (2)
  - Suicide attempt [Unknown]
  - Somnolence [Recovered/Resolved]

NARRATIVE: CASE EVENT DATE: 20181226
